FAERS Safety Report 14835031 (Version 1)
Quarter: 2018Q2

REPORT INFORMATION
  Report Type: Spontaneous
  Country: DE (occurrence: DE)
  Receive Date: 20180501
  Receipt Date: 20180501
  Transmission Date: 20180711
  Serious: Yes (Hospitalization)
  Sender: FDA-Public Use
  Company Number: DE-CONCORDIA PHARMACEUTICALS INC.-E2B_00011476

PATIENT
  Age: 78 Year
  Sex: Female
  Weight: 51 kg

DRUGS (5)
  1. METOPROLOL. [Concomitant]
     Active Substance: METOPROLOL
     Dosage: 95 MG, 1-0-0-0
  2. SANDIMMUN 50 MG [Suspect]
     Active Substance: CYCLOSPORINE
     Dosage: 50 MG, 1-0-0.5-0
  3. SIMVASTATIN. [Concomitant]
     Active Substance: SIMVASTATIN
     Dosage: NK
  4. RAMIPRIL. [Concomitant]
     Active Substance: RAMIPRIL
     Dosage: 5 MG, 1-0-0-0
  5. PREDNISOLONE. [Suspect]
     Active Substance: PREDNISOLONE
     Dosage: 4 MG, 1-0-0-0

REACTIONS (6)
  - Glomerular filtration rate decreased [None]
  - Peripheral swelling [None]
  - Pain in extremity [Unknown]
  - Aspartate aminotransferase increased [None]
  - Swelling [Unknown]
  - Blood creatinine increased [None]

NARRATIVE: CASE EVENT DATE: 20160421
